FAERS Safety Report 8673964 (Version 3)
Quarter: 2012Q4

REPORT INFORMATION
  Report Type: 
  Country: US (occurrence: US)
  Receive Date: 20120719
  Receipt Date: 20120906
  Transmission Date: 20130627
  Serious: Yes (Death)
  Sender: FDA-Public Use
  Company Number: US-PFIZER INC-2012169090

PATIENT
  Age: 67 Year
  Sex: Female

DRUGS (1)
  1. VFEND [Suspect]
     Indication: ASPERGILLOSIS
     Dosage: 200 mg, 2x/day
     Dates: start: 20120220

REACTIONS (2)
  - Cholecystitis acute [Fatal]
  - Sepsis [Fatal]
